FAERS Safety Report 4744411-3 (Version None)
Quarter: 2005Q3

REPORT INFORMATION
  Report Type: 
  Country: None (occurrence: None)
  Receive Date: 20050811
  Receipt Date: 20050811
  Transmission Date: 20060218
  Serious: Yes (Death)
  Sender: FDA-Public Use
  Company Number: None

PATIENT
  Age: 65 Year
  Sex: Female

DRUGS (23)
  1. BEVACIZUMAB [Suspect]
     Indication: MESOTHELIOMA
     Dosage: 15 MG/KG IV Q 21 DAYS
     Route: 042
     Dates: start: 20050606, end: 20050606
  2. ERLOTINIB [Suspect]
     Indication: MESOTHELIOMA
     Dosage: 150MG DAILY (ORAL)
     Route: 048
     Dates: start: 20050606, end: 20050626
  3. ZANTAC [Concomitant]
  4. LIPITOR [Concomitant]
  5. FOSAMAX [Concomitant]
  6. LORAZEPAM [Concomitant]
  7. AMBIEN [Concomitant]
  8. FOLIC ACID [Concomitant]
  9. ARANESP [Concomitant]
  10. ZOFRAN [Concomitant]
  11. COMPAZINE [Concomitant]
  12. ATIVAN [Concomitant]
  13. DEXAMETHASONE [Concomitant]
  14. RETREATMENT [Concomitant]
  15. OXYCODONE [Concomitant]
  16. MS CONTIN [Concomitant]
  17. TESSALON [Concomitant]
  18. RITALIN [Concomitant]
  19. NEURONTIN [Concomitant]
  20. SENNA [Concomitant]
  21. ATENOLOL [Concomitant]
  22. COLACE [Concomitant]
  23. OXYCONTIN [Concomitant]

REACTIONS (2)
  - DISEASE PROGRESSION [None]
  - MESOTHELIOMA MALIGNANT [None]
